FAERS Safety Report 8606722-0 (Version None)
Quarter: 2012Q3

REPORT INFORMATION
  Report Type: 
  Country: None (occurrence: None)
  Receive Date: 20120809
  Receipt Date: 20120809
  Transmission Date: 20120928
  Serious: Yes (Life-Threatening, Hospitalization)
  Sender: FDA-Public Use
  Company Number: None

PATIENT
  Age: 75 Year
  Sex: Male
  Weight: 71.8 kg

DRUGS (2)
  1. SILVER SULFADIAZINE [Suspect]
     Dosage: BID TOP
     Route: 061
     Dates: start: 20120604, end: 20120609
  2. SULFAMETHOXAZOLE AND TRIMETHOPRIM [Suspect]
     Dosage: 1 TAB BID PO
     Route: 048
     Dates: start: 20120604, end: 20120609

REACTIONS (9)
  - PYREXIA [None]
  - LIVER FUNCTION TEST ABNORMAL [None]
  - BLOOD UREA INCREASED [None]
  - CONFUSIONAL STATE [None]
  - BLOOD CREATININE INCREASED [None]
  - EOSINOPHILIA [None]
  - RASH [None]
  - PRURITUS [None]
  - URTICARIA [None]
